FAERS Safety Report 8297163-7 (Version None)
Quarter: 2012Q2

REPORT INFORMATION
  Report Type: 
  Country: None (occurrence: None)
  Receive Date: 20120419
  Receipt Date: 20120416
  Transmission Date: 20120825
  Serious: Yes (Other)
  Sender: FDA-Public Use
  Company Number: US-PFIZER INC-2012094168

PATIENT
  Sex: Female
  Weight: 90.703 kg

DRUGS (3)
  1. PREMPRO [Suspect]
     Indication: MENORRHAGIA
  2. PREMPRO [Suspect]
     Indication: PALPITATIONS
     Dosage: UNK
     Route: 048
     Dates: end: 20120403
  3. PREMPRO [Suspect]
     Indication: DYSMENORRHOEA

REACTIONS (6)
  - MOOD ALTERED [None]
  - VAGINAL HAEMORRHAGE [None]
  - DYSMENORRHOEA [None]
  - INFLUENZA LIKE ILLNESS [None]
  - ENDOCRINE DISORDER [None]
  - FEELING ABNORMAL [None]
